FAERS Safety Report 25089297 (Version 1)
Quarter: 2025Q1

REPORT INFORMATION
  Report Type: Spontaneous
  Country: FI (occurrence: FI)
  Receive Date: 20250318
  Receipt Date: 20250318
  Transmission Date: 20250409
  Serious: Yes (Other)
  Sender: STRIDES
  Company Number: FI-STRIDES ARCOLAB LIMITED-2025SP003386

PATIENT
  Sex: Male

DRUGS (7)
  1. METHYLPHENIDATE [Suspect]
     Active Substance: METHYLPHENIDATE
     Indication: Dystonia
     Route: 065
  2. METHYLPHENIDATE [Suspect]
     Active Substance: METHYLPHENIDATE
     Indication: Parkinsonism
  3. PRAMIPEXOLE DIHYDROCHLORIDE [Suspect]
     Active Substance: PRAMIPEXOLE DIHYDROCHLORIDE
     Indication: Dystonia
     Route: 065
  4. PRAMIPEXOLE DIHYDROCHLORIDE [Suspect]
     Active Substance: PRAMIPEXOLE DIHYDROCHLORIDE
     Indication: Parkinsonism
     Route: 065
  5. PRAMIPEXOLE DIHYDROCHLORIDE [Suspect]
     Active Substance: PRAMIPEXOLE DIHYDROCHLORIDE
     Route: 065
  6. AMANTADINE [Suspect]
     Active Substance: AMANTADINE
     Indication: Dystonia
     Route: 065
  7. AMANTADINE [Suspect]
     Active Substance: AMANTADINE
     Indication: Parkinsonism

REACTIONS (10)
  - Dystonia [Unknown]
  - Drug ineffective [Unknown]
  - Therapeutic product effect incomplete [Unknown]
  - Dysphoria [Unknown]
  - Bowel movement irregularity [Unknown]
  - Restlessness [Unknown]
  - Dyskinesia [Unknown]
  - Nausea [Unknown]
  - Sleep disorder [Unknown]
  - Off label use [Unknown]
